FAERS Safety Report 9307640 (Version 1)
Quarter: 2013Q2

REPORT INFORMATION
  Report Type: Spontaneous
  Country: US (occurrence: US)
  Receive Date: 20130524
  Receipt Date: 20130524
  Transmission Date: 20140414
  Serious: No
  Sender: FDA-Public Use
  Company Number: US-PFIZER INC-2013155175

PATIENT
  Age: 38 Year
  Sex: Male
  Weight: 113 kg

DRUGS (4)
  1. SOMAVERT [Suspect]
     Dosage: 10 MG, DAILY
     Route: 058
  2. CABERGOLINE [Concomitant]
     Dosage: 0.5 MG, UNK
  3. SOMATULINE [Concomitant]
     Dosage: 120/0.5 ML
  4. LIDOCAINE [Concomitant]
     Dosage: 3 %, UNK

REACTIONS (1)
  - Injection site bruising [Unknown]
